FAERS Safety Report 9654808 (Version 2)
Quarter: 2016Q2

REPORT INFORMATION
  Report Type: Spontaneous
  Country: US (occurrence: US)
  Receive Date: 20131029
  Receipt Date: 20160422
  Transmission Date: 20160815
  Serious: Yes (Other)
  Sender: FDA-Public Use
  Company Number: US-NAPPMUNDI-USA-2012-0091870

PATIENT
  Sex: Female

DRUGS (5)
  1. MORPHINE SULFATE (SIMILAR TO NDA 19-516) [Suspect]
     Active Substance: MORPHINE SULFATE
     Indication: DRUG ABUSE
  2. OXYCONTIN [Suspect]
     Active Substance: OXYCODONE HYDROCHLORIDE
     Indication: DRUG ABUSE
  3. CODEINE [Suspect]
     Active Substance: CODEINE
     Indication: DRUG ABUSE
  4. HYDROCODONE [Suspect]
     Active Substance: HYDROCODONE
     Indication: DRUG ABUSE
  5. VICODIN [Suspect]
     Active Substance: ACETAMINOPHEN\HYDROCODONE BITARTRATE
     Indication: PAIN
     Dosage: 10 MG, UNK
     Route: 048

REACTIONS (2)
  - Somnolence [Unknown]
  - Drug abuse [Unknown]
